FAERS Safety Report 9263003 (Version 2)
Quarter: 2013Q3

REPORT INFORMATION
  Report Type: Spontaneous
  Country: BR (occurrence: None)
  Receive Date: 20130426
  Receipt Date: 20130918
  Transmission Date: 20140515
  Serious: Yes (Other)
  Sender: FDA-Public Use
  Company Number: ENTC2013-0155

PATIENT
  Age: 83 Year
  Sex: Male

DRUGS (1)
  1. STALEVO (LEVODOPA, CARBIDOPA, ENTACAPONE) [Suspect]
     Dosage: 50 MG  ONCE OR TWICE DAILY

REACTIONS (4)
  - Parkinson^s disease [None]
  - Drug ineffective [None]
  - Product quality issue [None]
  - Disease progression [None]
